FAERS Safety Report 4831508-2 (Version None)
Quarter: 2005Q4

REPORT INFORMATION
  Report Type: 
  Country: None (occurrence: None)
  Receive Date: 20051116
  Receipt Date: 20051104
  Transmission Date: 20060501
  Serious: Yes (Other)
  Sender: FDA-Public Use
  Company Number: 2005-BP-19201RO

PATIENT
  Age: 35 Year
  Sex: Female

DRUGS (2)
  1. LORAZEPAM [Suspect]
     Dosage: 68 MG OVER 2 DAYS, IV
     Route: 042
  2. PROPYLENE GLYCOL [Suspect]
     Dosage: 28 GM OVER 2 DAYS , IV
     Route: 042

REACTIONS (2)
  - ANION GAP INCREASED [None]
  - DRUG TOXICITY [None]
